FAERS Safety Report 21526709 (Version 2)
Quarter: 2022Q4

REPORT INFORMATION
  Report Type: Spontaneous
  Country: US (occurrence: None)
  Receive Date: 20221031
  Receipt Date: 20221121
  Transmission Date: 20230113
  Serious: No
  Sender: FDA-Public Use
  Company Number: US-Encube-000219

PATIENT
  Sex: Female

DRUGS (3)
  1. DICLOFENAC SODIUM [Suspect]
     Active Substance: DICLOFENAC SODIUM
     Indication: Product used for unknown indication
  2. METRONIDAZOLE [Suspect]
     Active Substance: METRONIDAZOLE
     Indication: Product used for unknown indication
  3. SULFACETAMIDE SODIUM [Suspect]
     Active Substance: SULFACETAMIDE SODIUM
     Indication: Product used for unknown indication
     Dosage: DOSAGE FORM: LIQUID

REACTIONS (3)
  - Headache [Recovered/Resolved]
  - Taste disorder [Recovered/Resolved]
  - Irritability [Recovered/Resolved]
